FAERS Safety Report 9031090 (Version 1)
Quarter: 2013Q1

REPORT INFORMATION
  Report Type: Spontaneous
  Country: AE (occurrence: AE)
  Receive Date: 20130123
  Receipt Date: 20130123
  Transmission Date: 20140127
  Serious: Yes (Other)
  Sender: FDA-Public Use
  Company Number: AE-JHP PHARMACEUTICALS, LLC-JHP201300016

PATIENT
  Age: 3 Year
  Sex: Male
  Weight: 17.5 kg

DRUGS (2)
  1. ADRENALIN [Suspect]
     Indication: CROUP INFECTIOUS
     Dosage: 1 MG, UNK
     Route: 055
  2. ADRENALIN [Suspect]
     Dosage: 1 MG, UNK
     Route: 040

REACTIONS (9)
  - Wandering pacemaker [Recovered/Resolved]
  - Accidental overdose [Recovered/Resolved]
  - Incorrect route of drug administration [Recovered/Resolved]
  - Electrocardiogram ST segment elevation [Recovered/Resolved]
  - Atrial tachycardia [Recovered/Resolved]
  - Hypoxia [Recovered/Resolved]
  - Hypertension [Recovered/Resolved]
  - Flushing [Recovered/Resolved]
  - Off label use [Recovered/Resolved]
